FAERS Safety Report 8443111 (Version 3)
Quarter: 2012Q4

REPORT INFORMATION
  Report Type: 
  Country: JP (occurrence: JP)
  Receive Date: 20120306
  Receipt Date: 20120911
  Transmission Date: 20130627
  Serious: Yes (Death)
  Sender: FDA-Public Use
  Company Number: JP-AMGEN-JPNSP2012013735

PATIENT
  Age: 81 Year
  Sex: Female
  Weight: 65 kg

DRUGS (15)
  1. ROMIPLOSTIM [Suspect]
     Indication: IDIOPATHIC THROMBOCYTOPENIC PURPURA
     Dosage: 1 mug/kg, qd
     Route: 058
     Dates: start: 20120107, end: 20120107
  2. ROMIPLOSTIM [Suspect]
     Dosage: 2 mug/kg, qd
     Route: 058
     Dates: start: 20120113, end: 20120113
  3. ROMIPLOSTIM [Suspect]
     Dosage: 3 mug/kg, qd
     Route: 058
     Dates: start: 20120118, end: 20120118
  4. ROMIPLOSTIM [Suspect]
     Dosage: 4 mug/kg, qd
     Route: 058
     Dates: start: 20120124, end: 20120124
  5. REVOLADE [Concomitant]
     Indication: IDIOPATHIC THROMBOCYTOPENIC PURPURA
     Dosage: 37.5 mg, UNK
     Route: 048
     Dates: start: 20110331, end: 20120107
  6. PARIET [Concomitant]
     Indication: PROPHYLAXIS
     Dosage: UNK
     Route: 048
  7. AMLODIN [Concomitant]
     Indication: HYPERTENSION
     Dosage: UNK
     Route: 048
  8. BLOPRESS [Concomitant]
     Indication: HYPERTENSION
     Dosage: UNK
     Route: 048
  9. LASIX [Concomitant]
     Indication: CARDIAC FAILURE
     Dosage: UNK
     Route: 065
  10. ARTIST [Concomitant]
     Indication: CARDIAC FAILURE
     Dosage: UNK
     Route: 048
  11. FLOMOX [Concomitant]
     Indication: BRONCHITIS
     Dosage: UNK
     Route: 048
  12. HEAVY MAGNESIUM OXIDE [Concomitant]
     Indication: CONSTIPATION
     Dosage: UNK
     Route: 048
  13. VANCOMYCIN HYDROCHLORIDE [Concomitant]
     Indication: STAPHYLOCOCCAL SEPSIS
     Dosage: UNK
     Route: 065
  14. MIYA-BM [Concomitant]
     Indication: ENTEROCOLITIS
     Dosage: UNK
     Route: 048
  15. TAKEPRON [Concomitant]
     Indication: PROPHYLAXIS
     Dosage: UNK
     Route: 065

REACTIONS (2)
  - Melaena [Fatal]
  - Cardiac failure [Fatal]
